FAERS Safety Report 4562418-6 (Version None)
Quarter: 2005Q1

REPORT INFORMATION
  Report Type: 
  Country: None (occurrence: None)
  Receive Date: 20050121
  Receipt Date: 20050105
  Transmission Date: 20050727
  Serious: Yes (Life-Threatening, Hospitalization)
  Sender: FDA-Public Use
  Company Number: 2004-UK-01433UK

PATIENT
  Age: 55 Year
  Sex: Male

DRUGS (5)
  1. AGGRENOX [Suspect]
     Indication: CEREBROVASCULAR ACCIDENT PROPHYLAXIS
     Dosage: 1 ANZ DAILY,  PO
     Route: 048
     Dates: start: 20040914, end: 20041220
  2. MICARDIS [Suspect]
     Dosage: 1 ANZ DAILY,  PO
     Route: 048
     Dates: start: 20040915
  3. PERINDOPRILUM (PERINDOPRIL) (TA) [Concomitant]
  4. ATENOLOLIUM (ATENOLOL) (TA) [Concomitant]
  5. PLACEBO [Suspect]
     Indication: CEREBROVASCULAR ACCIDENT PROPHYLAXIS
     Dosage: PO
     Route: 048
     Dates: start: 20040915

REACTIONS (1)
  - ANGINA UNSTABLE [None]
